FAERS Safety Report 6420667-6 (Version None)
Quarter: 2009Q4

REPORT INFORMATION
  Report Type: 
  Country: None (occurrence: None)
  Receive Date: 20091027
  Receipt Date: 20060607
  Transmission Date: 20100525
  Serious: Yes (Hospitalization)
  Sender: FDA-Public Use
  Company Number: 2009009163

PATIENT
  Age: 40 Year
  Sex: Female
  Weight: 65.7716 kg

DRUGS (2)
  1. ACTIQ [Suspect]
     Indication: NEURALGIA
     Dosage: 1200 MCG, BU
     Route: 002
     Dates: start: 20050101
  2. DURAGESIC-100 [Concomitant]

REACTIONS (3)
  - DEVICE RELATED INFECTION [None]
  - DIVERTICULITIS [None]
  - STAPHYLOCOCCAL INFECTION [None]
